FAERS Safety Report 8372546-5 (Version None)
Quarter: 2012Q2

REPORT INFORMATION
  Report Type: 
  Country: None (occurrence: None)
  Receive Date: 20120521
  Receipt Date: 20120515
  Transmission Date: 20120825
  Serious: Yes (Other)
  Sender: FDA-Public Use
  Company Number: PHHY2012AR042388

PATIENT
  Sex: Female

DRUGS (1)
  1. TRILEPTAL [Suspect]
     Indication: PETIT MAL EPILEPSY
     Dosage: 600 MG, QID

REACTIONS (3)
  - DEPRESSION [None]
  - OCULAR MYASTHENIA [None]
  - NEUROPATHY PERIPHERAL [None]
